FAERS Safety Report 21056091 (Version 1)
Quarter: 2022Q3

REPORT INFORMATION
  Report Type: Spontaneous
  Country: CN (occurrence: None)
  Receive Date: 20220708
  Receipt Date: 20220708
  Transmission Date: 20221027
  Serious: Yes (Other)
  Sender: FDA-Public Use
  Company Number: CN-ROCHE-3127471

PATIENT
  Age: 58 Year
  Sex: Female

DRUGS (16)
  1. AVASTIN [Suspect]
     Active Substance: BEVACIZUMAB
     Indication: Adenocarcinoma metastatic
     Dosage: 02-JUL-2020 AND 05-AUG-2020
     Route: 065
  2. AVASTIN [Suspect]
     Active Substance: BEVACIZUMAB
     Route: 065
     Dates: start: 20200826, end: 20201116
  3. AVASTIN [Suspect]
     Active Substance: BEVACIZUMAB
     Route: 065
     Dates: start: 20201216
  4. PEMETREXED [Concomitant]
     Active Substance: PEMETREXED
     Indication: Adenocarcinoma metastatic
     Dosage: 02-JUL-2020 AND 05-AUG-2020
  5. PEMETREXED [Concomitant]
     Active Substance: PEMETREXED
     Dates: start: 20200826, end: 20201116
  6. CATEQUENTINIB [Concomitant]
     Active Substance: CATEQUENTINIB
     Indication: Adenocarcinoma metastatic
     Dates: start: 20210720
  7. CATEQUENTINIB [Concomitant]
     Active Substance: CATEQUENTINIB
     Dates: start: 20211019
  8. CATEQUENTINIB [Concomitant]
     Active Substance: CATEQUENTINIB
     Dates: start: 20211130
  9. CATEQUENTINIB [Concomitant]
     Active Substance: CATEQUENTINIB
     Dates: start: 20220105
  10. SINTILIMAB [Concomitant]
     Active Substance: SINTILIMAB
     Indication: Adenocarcinoma metastatic
     Dates: start: 20211019
  11. SINTILIMAB [Concomitant]
     Active Substance: SINTILIMAB
     Dates: start: 20211130
  12. SINTILIMAB [Concomitant]
     Active Substance: SINTILIMAB
     Dates: start: 20220105
  13. VINORELBINE [Concomitant]
     Active Substance: VINORELBINE TARTRATE
     Indication: Adenocarcinoma metastatic
     Dates: start: 20211019
  14. GEMCITABINE [Concomitant]
     Active Substance: GEMCITABINE
     Indication: Adenocarcinoma metastatic
     Dates: start: 20220105
  15. ICOTINIB [Concomitant]
     Active Substance: ICOTINIB
     Indication: Adenocarcinoma metastatic
     Dates: start: 20220424
  16. APATINIB [Concomitant]
     Active Substance: APATINIB
     Indication: Adenocarcinoma metastatic
     Dates: start: 202206

REACTIONS (5)
  - Dyspnoea [Unknown]
  - Decreased appetite [Unknown]
  - Asthenia [Unknown]
  - Acute kidney injury [Recovering/Resolving]
  - Drug-induced liver injury [Recovering/Resolving]
